FAERS Safety Report 14829049 (Version 1)
Quarter: 2018Q2

REPORT INFORMATION
  Report Type: Spontaneous
  Country: US (occurrence: US)
  Receive Date: 20180406
  Receipt Date: 20180406
  Transmission Date: 20180711
  Serious: Yes (Other)
  Sender: FDA-Public Use
  Company Number: None

PATIENT
  Age: 56 Year
  Sex: Female
  Weight: 91.35 kg

DRUGS (3)
  1. CYCLOBENZAPINE HAL 10 MG [Suspect]
     Active Substance: CYCLOBENZAPRINE HYDROCHLORIDE
     Indication: MUSCLE SPASMS
     Dosage: ?          QUANTITY:1 TABLET(S);?
     Route: 048
     Dates: start: 20180219, end: 20180405
  2. EDARBYCLOR [Concomitant]
     Active Substance: AZILSARTAN KAMEDOXOMIL\CHLORTHALIDONE
  3. CYCLOBENZAPINE HAL 10 MG [Suspect]
     Active Substance: CYCLOBENZAPRINE HYDROCHLORIDE
     Indication: INFLAMMATION
     Dosage: ?          QUANTITY:1 TABLET(S);?
     Route: 048
     Dates: start: 20180219, end: 20180405

REACTIONS (3)
  - Anger [None]
  - Drug intolerance [None]
  - Irritability [None]

NARRATIVE: CASE EVENT DATE: 20180405
